FAERS Safety Report 6140574-6 (Version None)
Quarter: 2009Q2

REPORT INFORMATION
  Report Type: 
  Country: None (occurrence: None)
  Receive Date: 20090402
  Receipt Date: 20090325
  Transmission Date: 20091009
  Serious: Yes (Hospitalization)
  Sender: FDA-Public Use
  Company Number: FR-JNJFOC-20090306367

PATIENT
  Sex: Male
  Weight: 55 kg

DRUGS (6)
  1. HALDOL [Suspect]
     Indication: PSYCHOTIC DISORDER
     Route: 042
     Dates: start: 20081031, end: 20081101
  2. SOLU-MEDROL [Suspect]
     Indication: PREMEDICATION
     Route: 042
  3. HUMAN T ANTILYMPHOCYTE IMMUNOGLOBULIN RABBIT [Suspect]
     Indication: BONE MARROW FAILURE
     Route: 042
  4. CORDARONE [Concomitant]
  5. CORDARONE [Concomitant]
     Indication: ATRIAL FIBRILLATION
  6. CORDARONE [Concomitant]
     Indication: CARDIAC FAILURE

REACTIONS (1)
  - MESENTERIC VEIN THROMBOSIS [None]
